FAERS Safety Report 19771701 (Version 1)
Quarter: 2021Q3

REPORT INFORMATION
  Report Type: Spontaneous
  Country: US (occurrence: US)
  Receive Date: 20210901
  Receipt Date: 20210901
  Transmission Date: 20211014
  Serious: Yes (Hospitalization)
  Sender: FDA-Public Use
  Company Number: None

PATIENT
  Age: 78 Year
  Sex: Female

DRUGS (13)
  1. AMLODIPINE, AUGMENTIN [Concomitant]
  2. HUMALOG, HYDROCHLORT [Concomitant]
  3. LANTUS, LOSARTAN POT [Concomitant]
  4. MORPHINE, OXYCODONE [Concomitant]
  5. HYDRO/APAP, ISOSORB MONO [Concomitant]
  6. PHENERGAN, RISPERDAL [Concomitant]
  7. CUBICIN, CYMBALTA [Concomitant]
  8. VOTRIENT [Suspect]
     Active Substance: PAZOPANIB HYDROCHLORIDE
     Indication: BREAST CANCER FEMALE
     Route: 048
     Dates: start: 20180307
  9. TUMS , TYLENOL [Concomitant]
  10. VITAMIN D3 [Concomitant]
     Active Substance: CHOLECALCIFEROL
  11. EPHEDRA, FLUOXETINE [Concomitant]
  12. FUROSEMIDE, GABAPENTIN [Concomitant]
  13. VOTRIENT [Concomitant]
     Active Substance: PAZOPANIB HYDROCHLORIDE

REACTIONS (2)
  - Therapy interrupted [None]
  - Myocardial infarction [None]

NARRATIVE: CASE EVENT DATE: 20210812
